FAERS Safety Report 24668423 (Version 1)
Quarter: 2024Q4

REPORT INFORMATION
  Report Type: Spontaneous
  Country: FR (occurrence: FR)
  Receive Date: 20241127
  Receipt Date: 20241127
  Transmission Date: 20250115
  Serious: Yes (Other)
  Sender: AUROBINDO
  Company Number: FR-AFSSAPS-AN2024001478

PATIENT
  Age: 52 Year
  Sex: Female
  Weight: 76.4 kg

DRUGS (11)
  1. ONDANSETRON [Suspect]
     Active Substance: ONDANSETRON
     Indication: Abdominal pain
     Dosage: 8 MILLIGRAM, DAILY
     Route: 042
     Dates: start: 20240912, end: 20241002
  2. TRIMEBUTINE [Suspect]
     Active Substance: TRIMEBUTINE
     Indication: Abdominal pain
     Dosage: 50 MILLIGRAM, 3 TIMES A DAY
     Route: 042
     Dates: start: 20240917, end: 20241010
  3. AMBISOME [Suspect]
     Active Substance: AMPHOTERICIN B
     Indication: Candida infection
     Dosage: 250 MILLIGRAM, DAILY
     Route: 042
     Dates: start: 20240918, end: 20240930
  4. AMBISOME [Suspect]
     Active Substance: AMPHOTERICIN B
     Dosage: 250 MILLIGRAM, DAILY
     Route: 042
     Dates: start: 20241002, end: 20241007
  5. CLINDAMYCIN HYDROCHLORIDE MONOHYDRATE [Suspect]
     Active Substance: CLINDAMYCIN HYDROCHLORIDE MONOHYDRATE
     Indication: Septic shock
     Dosage: 600 MILLIGRAM, 3 TIMES A DAY
     Route: 042
     Dates: start: 20241002, end: 20241010
  6. FILGRASTIM [Suspect]
     Active Substance: FILGRASTIM
     Indication: Neutropenia
     Dosage: 30 INTERNATIONAL UNIT, ONCE A DAY
     Route: 058
     Dates: start: 20240927, end: 20241009
  7. PIPERACILLIN SODIUM\TAZOBACTAM SODIUM [Suspect]
     Active Substance: PIPERACILLIN SODIUM\TAZOBACTAM SODIUM
     Indication: Septic shock
     Dosage: 4 GRAM, 3 TIMES A DAY
     Route: 042
     Dates: start: 20241002, end: 20241010
  8. ACYCLOVIR [Concomitant]
     Active Substance: ACYCLOVIR
     Indication: Product used for unknown indication
     Dosage: 250 MILLIGRAM, 3 TIMES A DAY
     Route: 042
     Dates: start: 20240929
  9. NEFOPAM HYDROCHLORIDE [Concomitant]
     Active Substance: NEFOPAM HYDROCHLORIDE
     Indication: Abdominal pain
     Dosage: 60 MILLIGRAM, DAILY
     Route: 042
     Dates: start: 20240917
  10. PANTOPRAZOLE [Concomitant]
     Active Substance: PANTOPRAZOLE
     Indication: Product used for unknown indication
     Dosage: 40 MILLIGRAM, ONCE A DAY
     Route: 042
     Dates: start: 20240923
  11. VITAMIN K1 [Concomitant]
     Active Substance: PHYTONADIONE
     Indication: Product used for unknown indication
     Dosage: 10 MILLIGRAM, EVERY WEEK
     Route: 042
     Dates: start: 20240917

REACTIONS (1)
  - Proteinuria [Recovering/Resolving]

NARRATIVE: CASE EVENT DATE: 20241004
